FAERS Safety Report 25589477 (Version 1)
Quarter: 2025Q3

REPORT INFORMATION
  Report Type: Spontaneous
  Country: US (occurrence: US)
  Receive Date: 20250722
  Receipt Date: 20250722
  Transmission Date: 20251021
  Serious: No
  Sender: ALEXION PHARMACEUTICALS
  Company Number: US-AstraZeneca-CH-00912020AP

PATIENT
  Age: 78 Year
  Sex: Male

DRUGS (1)
  1. SYMBICORT [Suspect]
     Active Substance: BUDESONIDE\FORMOTEROL FUMARATE DIHYDRATE
     Indication: Chronic obstructive pulmonary disease
     Dosage: 80 MICROGRAM, BID
     Route: 065
     Dates: start: 20250714

REACTIONS (4)
  - Cough [Unknown]
  - Visual impairment [Unknown]
  - Device delivery system issue [Unknown]
  - Confusional state [Unknown]

NARRATIVE: CASE EVENT DATE: 20250714
